FAERS Safety Report 8140955-5 (Version None)
Quarter: 2012Q1

REPORT INFORMATION
  Report Type: 
  Country: None (occurrence: None)
  Receive Date: 20120216
  Receipt Date: 20120208
  Transmission Date: 20120608
  Serious: Yes (Other)
  Sender: FDA-Public Use
  Company Number: PHHY2012GB010741

PATIENT
  Age: 17 Year
  Sex: Female

DRUGS (2)
  1. LORAZEPAM [Suspect]
     Indication: AGITATION
     Dosage: 2 MG, UNK
     Route: 048
     Dates: start: 20120105, end: 20120116
  2. SERTRALINE HYDROCHLORIDE [Concomitant]
     Indication: DEPRESSED MOOD
     Dosage: 50 MG, UNK
     Dates: start: 20120109

REACTIONS (3)
  - MENTAL DISORDER [None]
  - FLASHBACK [None]
  - AGITATION [None]
